FAERS Safety Report 6240481-4 (Version None)
Quarter: 2009Q2

REPORT INFORMATION
  Report Type: 
  Country: None (occurrence: None)
  Receive Date: 20090623
  Receipt Date: 20090316
  Transmission Date: 20091009
  Serious: No
  Sender: FDA-Public Use
  Company Number: US-ASTRAZENECA-2009UW06834

PATIENT
  Age: 2 Year
  Sex: Male
  Weight: 14.1 kg

DRUGS (2)
  1. PULMICORT RESPULES [Suspect]
     Indication: WHEEZING
     Route: 055
     Dates: start: 20081201
  2. XOPENEX [Concomitant]
     Indication: WHEEZING

REACTIONS (1)
  - NASOPHARYNGITIS [None]
